FAERS Safety Report 6771333-9 (Version None)
Quarter: 2010Q2

REPORT INFORMATION
  Report Type: 
  Country: None (occurrence: None)
  Receive Date: 20100616
  Receipt Date: 20100607
  Transmission Date: 20101027
  Serious: Yes (Other)
  Sender: FDA-Public Use
  Company Number: US-PERRIGO-10US010292

PATIENT
  Sex: Male
  Weight: 79.365 kg

DRUGS (4)
  1. NICOTINE POLACRILEX REGULAR 2 MG 029 [Suspect]
     Indication: NICOTINE DEPENDENCE
     Dosage: 2 MG, X17 PER DAY
     Route: 002
     Dates: start: 20050101
  2. ADVAIR DISKUS 100/50 [Concomitant]
     Indication: ASTHMA
     Dosage: UNK
     Route: 065
     Dates: start: 20070101
  3. ALVESCO [Concomitant]
     Indication: ASTHMA
     Dosage: UNK
     Route: 065
     Dates: start: 20070101
  4. MULTIPLE VITAMINS [Concomitant]
     Indication: PROPHYLAXIS
     Dosage: UNK
     Route: 065

REACTIONS (4)
  - ASTHMA [None]
  - DYSPNOEA EXERTIONAL [None]
  - INCORRECT DRUG ADMINISTRATION DURATION [None]
  - NICOTINE DEPENDENCE [None]
